FAERS Safety Report 20390924 (Version 1)
Quarter: 2022Q1

REPORT INFORMATION
  Report Type: Spontaneous
  Country: US (occurrence: None)
  Receive Date: 20220127
  Receipt Date: 20220127
  Transmission Date: 20220424
  Serious: Yes (Other)
  Sender: FDA-Public Use
  Company Number: None

PATIENT
  Age: 71 Year
  Sex: Male

DRUGS (1)
  1. ERIVEDGE [Suspect]
     Active Substance: VISMODEGIB
     Indication: Basal cell carcinoma
     Dosage: FREQUENCY : DAILY;?
     Route: 048

REACTIONS (4)
  - Pulmonary embolism [None]
  - Muscle spasms [None]
  - Taste disorder [None]
  - Alopecia [None]

NARRATIVE: CASE EVENT DATE: 20211001
